FAERS Safety Report 16922426 (Version 1)
Quarter: 2019Q4

REPORT INFORMATION
  Report Type: Spontaneous
  Country: CN (occurrence: CN)
  Receive Date: 20191016
  Receipt Date: 20191016
  Transmission Date: 20200122
  Serious: Yes (Other)
  Sender: FDA-Public Use
  Company Number: CN-CHEPLA-C20192518_11

PATIENT
  Age: 2 Year
  Sex: Female

DRUGS (22)
  1. ARA-C [Suspect]
     Active Substance: CYTARABINE
     Indication: PREMEDICATION
  2. SULFAMETHOXAZOLE [Suspect]
     Active Substance: SULFAMETHOXAZOLE
     Indication: PROPHYLAXIS
     Route: 065
  3. ATG [Suspect]
     Active Substance: LAPINE T-LYMPHOCYTE IMMUNE GLOBULIN
     Indication: BONE MARROW CONDITIONING REGIMEN
     Route: 065
  4. ATG [Suspect]
     Active Substance: LAPINE T-LYMPHOCYTE IMMUNE GLOBULIN
     Indication: STEM CELL TRANSPLANT
  5. GANCICLOVIR. [Suspect]
     Active Substance: GANCICLOVIR
     Indication: PROPHYLAXIS
     Route: 065
  6. IDARUBICIN [Suspect]
     Active Substance: IDARUBICIN
     Indication: STEM CELL TRANSPLANT
  7. ARA-C [Suspect]
     Active Substance: CYTARABINE
     Indication: BONE MARROW CONDITIONING REGIMEN
     Route: 065
  8. ARA-C [Suspect]
     Active Substance: CYTARABINE
     Indication: STEM CELL TRANSPLANT
  9. BUSULFAN. [Suspect]
     Active Substance: BUSULFAN
     Indication: PREMEDICATION
  10. CYCLOPHOSPHAMIDE. [Suspect]
     Active Substance: CYCLOPHOSPHAMIDE
     Indication: PREMEDICATION
  11. CYCLOPHOSPHAMIDE. [Suspect]
     Active Substance: CYCLOPHOSPHAMIDE
     Indication: STEM CELL TRANSPLANT
  12. URSODEOXYCHOLIC ACID [Suspect]
     Active Substance: URSODIOL
     Indication: PROPHYLAXIS
     Route: 065
  13. MYCOPHENOLATE MOFETIL. [Suspect]
     Active Substance: MYCOPHENOLATE MOFETIL
     Indication: PROPHYLAXIS AGAINST GRAFT VERSUS HOST DISEASE
     Route: 065
  14. BUSULFAN. [Suspect]
     Active Substance: BUSULFAN
     Indication: BONE MARROW CONDITIONING REGIMEN
     Route: 065
  15. ATG [Suspect]
     Active Substance: LAPINE T-LYMPHOCYTE IMMUNE GLOBULIN
     Indication: PREMEDICATION
  16. ALPROSTADIL. [Suspect]
     Active Substance: ALPROSTADIL
     Indication: PROPHYLAXIS
     Route: 065
  17. IDARUBICIN [Suspect]
     Active Substance: IDARUBICIN
     Indication: BONE MARROW CONDITIONING REGIMEN
     Route: 065
  18. CYCLOPHOSPHAMIDE. [Suspect]
     Active Substance: CYCLOPHOSPHAMIDE
     Indication: BONE MARROW CONDITIONING REGIMEN
     Route: 065
  19. BUSULFAN. [Suspect]
     Active Substance: BUSULFAN
     Indication: STEM CELL TRANSPLANT
  20. IDARUBICIN [Suspect]
     Active Substance: IDARUBICIN
     Indication: PREMEDICATION
  21. METHOTREXATE. [Suspect]
     Active Substance: METHOTREXATE
     Indication: PROPHYLAXIS AGAINST GRAFT VERSUS HOST DISEASE
     Route: 065
  22. ACYCLOVIR. [Suspect]
     Active Substance: ACYCLOVIR
     Indication: PROPHYLAXIS
     Route: 065

REACTIONS (4)
  - Gastrointestinal infection [Recovered/Resolved]
  - Hepatic function abnormal [Recovered/Resolved]
  - Cystitis haemorrhagic [Recovered/Resolved]
  - Cytomegalovirus viraemia [Recovered/Resolved]
